FAERS Safety Report 21457733 (Version 1)
Quarter: 2022Q4

REPORT INFORMATION
  Report Type: Report from Study
  Country: US (occurrence: US)
  Receive Date: 20221014
  Receipt Date: 20221014
  Transmission Date: 20230112
  Serious: Yes (Hospitalization)
  Sender: FDA-Public Use
  Company Number: US-JNJFOC-20221016330

PATIENT
  Age: 20 Year
  Sex: Male

DRUGS (8)
  1. INFLIXIMAB [Suspect]
     Active Substance: INFLIXIMAB
     Indication: Inflammatory bowel disease
     Route: 041
     Dates: start: 20060127, end: 20100712
  2. MERCAPTOPURINE [Concomitant]
     Active Substance: MERCAPTOPURINE
     Indication: Inflammatory bowel disease
  3. METHOTREXATE [Concomitant]
     Active Substance: METHOTREXATE
     Indication: Inflammatory bowel disease
  4. HUMIRA [Concomitant]
     Active Substance: ADALIMUMAB
     Indication: Inflammatory bowel disease
  5. SIROLIMUS [Concomitant]
     Active Substance: SIROLIMUS
     Indication: Inflammatory bowel disease
  6. STELARA [Concomitant]
     Active Substance: USTEKINUMAB
     Indication: Inflammatory bowel disease
  7. ILARIS [Concomitant]
     Active Substance: CANAKINUMAB
     Indication: Inflammatory bowel disease
  8. JAKAFI [Concomitant]
     Active Substance: RUXOLITINIB
     Indication: Inflammatory bowel disease

REACTIONS (2)
  - Clostridium difficile infection [Unknown]
  - Crohn^s disease [Recovered/Resolved with Sequelae]

NARRATIVE: CASE EVENT DATE: 20220701
